FAERS Safety Report 5796740-2 (Version None)
Quarter: 2008Q2

REPORT INFORMATION
  Report Type: 
  Country: None (occurrence: None)
  Receive Date: 20080627
  Receipt Date: 20080612
  Transmission Date: 20081010
  Serious: Yes (Hospitalization, Other)
  Sender: FDA-Public Use
  Company Number: 2008PV035501

PATIENT
  Age: 43 Year
  Sex: Female
  Weight: 113.3993 kg

DRUGS (14)
  1. SYMLIN [Suspect]
     Indication: TYPE 2 DIABETES MELLITUS
     Dosage: 60 MCG; TID; SC ; 180 MCG; TID; SC ; 90 MCG; TID; SC
     Route: 058
     Dates: start: 20071001, end: 20070101
  2. SYMLIN [Suspect]
     Indication: TYPE 2 DIABETES MELLITUS
     Dosage: 60 MCG; TID; SC ; 180 MCG; TID; SC ; 90 MCG; TID; SC
     Route: 058
     Dates: start: 20070101, end: 20080501
  3. SYMLIN [Suspect]
     Indication: TYPE 2 DIABETES MELLITUS
     Dosage: 60 MCG; TID; SC ; 180 MCG; TID; SC ; 90 MCG; TID; SC
     Route: 058
     Dates: start: 20080524
  4. NOVOLOG [Concomitant]
  5. LANTUS [Concomitant]
  6. CELEBREX [Concomitant]
  7. HUMIRA [Concomitant]
  8. METFORMIN HCL [Concomitant]
  9. AVANDIA [Concomitant]
  10. ARAZA TABLETS [Concomitant]
  11. BUMETANIDE [Concomitant]
  12. ANTIHYPERTENSIVES [Concomitant]
  13. CHOLESTEROL- AND TRIGLYCERIDE REDUCERS [Concomitant]
  14. CYMBALTA [Concomitant]

REACTIONS (11)
  - ANAEMIA VITAMIN B12 DEFICIENCY [None]
  - BLOOD GLUCOSE INCREASED [None]
  - CONFUSIONAL STATE [None]
  - HYPERHIDROSIS [None]
  - HYPOAESTHESIA ORAL [None]
  - HYPOGLYCAEMIA [None]
  - NAUSEA [None]
  - RENAL IMPAIRMENT [None]
  - SELF-MEDICATION [None]
  - THROMBOCYTOPENIA [None]
  - WEIGHT DECREASED [None]
